FAERS Safety Report 13115680 (Version 10)
Quarter: 2017Q2

REPORT INFORMATION
  Report Type: Report from Study
  Country: None (occurrence: NL)
  Receive Date: 20170114
  Receipt Date: 20170411
  Transmission Date: 20170830
  Serious: Yes (Hospitalization)
  Sender: FDA-Public Use
  Company Number: NL-ABBVIE-17P-114-1840811-00

PATIENT
  Age: 79 Year
  Sex: Female
  Weight: 55 kg

DRUGS (4)
  1. DUODOPA [Suspect]
     Active Substance: CARBIDOPA\LEVODOPA
     Dosage: CONTINUOUS DOSE INCREASED TO 5.3ML. EXTRA DOSE IS INCREASED TO 4ML
     Route: 050
  2. DUODOPA [Suspect]
     Active Substance: CARBIDOPA\LEVODOPA
     Indication: PARKINSON^S DISEASE
     Dosage: MD: 18, CD: 4.8, ED: 3
     Route: 050
     Dates: start: 20161219
  3. DUODOPA [Suspect]
     Active Substance: CARBIDOPA\LEVODOPA
     Dosage: MORNING DOSE IS REDUCED WITH 40% TO 9.4ML
     Route: 050
     Dates: start: 20170216
  4. DUODOPA [Suspect]
     Active Substance: CARBIDOPA\LEVODOPA
     Dosage: MD: 19 ML, CD: 5.0, ED: 3
     Route: 050

REACTIONS (18)
  - Bradykinesia [Recovered/Resolved]
  - Extra dose administered [Recovered/Resolved]
  - Drug ineffective [Recovered/Resolved]
  - Bronchitis [Recovered/Resolved]
  - Pneumonia [Recovered/Resolved]
  - Freezing phenomenon [Recovered/Resolved]
  - Drug dose omission [Unknown]
  - On and off phenomenon [Recovered/Resolved]
  - Mental impairment [Recovered/Resolved]
  - Somnolence [Recovered/Resolved]
  - Drug effect variable [Recovered/Resolved]
  - Cough [Recovered/Resolved]
  - Muscle rigidity [Recovered/Resolved]
  - Respiratory tract infection [Recovered/Resolved]
  - Movement disorder [Recovered/Resolved]
  - Abnormal faeces [Not Recovered/Not Resolved]
  - Dysphonia [Recovered/Resolved]
  - Sluggishness [Not Recovered/Not Resolved]

NARRATIVE: CASE EVENT DATE: 201701
